FAERS Safety Report 6746151-8 (Version None)
Quarter: 2010Q2

REPORT INFORMATION
  Report Type: 
  Country: None (occurrence: None)
  Receive Date: 20100528
  Receipt Date: 20090408
  Transmission Date: 20101027
  Serious: No
  Sender: FDA-Public Use
  Company Number: US-ASTRAZENECA-2009UW08837

PATIENT
  Age: 4 Month
  Sex: Male

DRUGS (2)
  1. PRILOSEC [Suspect]
     Indication: GASTROOESOPHAGEAL REFLUX DISEASE
     Route: 048
     Dates: start: 20090101
  2. RANITIDINE [Suspect]

REACTIONS (3)
  - COUGH [None]
  - NASOPHARYNGITIS [None]
  - PULMONARY CONGESTION [None]
